FAERS Safety Report 14647296 (Version 1)
Quarter: 2018Q1

REPORT INFORMATION
  Report Type: Spontaneous
  Country: US (occurrence: US)
  Receive Date: 20180316
  Receipt Date: 20180316
  Transmission Date: 20180509
  Serious: Yes (Other)
  Sender: FDA-Public Use
  Company Number: US-MACLEODS PHARMACEUTICALS US LTD-MAC2018011217

PATIENT

DRUGS (2)
  1. ASPIRIN. [Suspect]
     Active Substance: ASPIRIN
     Indication: PRODUCT USED FOR UNKNOWN INDICATION
     Dosage: 81 MG, QD
     Route: 065
  2. CLOPIDOGREL [Suspect]
     Active Substance: CLOPIDOGREL BISULFATE
     Indication: PRODUCT USED FOR UNKNOWN INDICATION
     Dosage: 75 MG, QD
     Route: 065

REACTIONS (10)
  - Spinal epidural haematoma [Recovered/Resolved]
  - Pain in extremity [Recovered/Resolved]
  - Nervous system disorder [Recovering/Resolving]
  - Anaesthesia [Unknown]
  - Muscular weakness [Recovering/Resolving]
  - Paraplegia [Recovered/Resolved]
  - Coagulopathy [Recovering/Resolving]
  - Anorectal disorder [Unknown]
  - Back pain [Recovered/Resolved]
  - Urinary retention [Not Recovered/Not Resolved]
